FAERS Safety Report 23398961 (Version 3)
Quarter: 2024Q1

REPORT INFORMATION
  Report Type: Spontaneous
  Country: US (occurrence: US)
  Receive Date: 20240112
  Receipt Date: 20240213
  Transmission Date: 20240409
  Serious: Yes (Hospitalization, Other)
  Sender: FDA-Public Use
  Company Number: US-GILEAD-2023-0655560

PATIENT
  Age: 71 Year
  Sex: Male
  Weight: 106.12 kg

DRUGS (11)
  1. TECARTUS [Suspect]
     Active Substance: BREXUCABTAGENE AUTOLEUCEL
     Indication: Mantle cell lymphoma
     Dosage: 68 ML
     Route: 042
     Dates: start: 20230522, end: 20230522
  2. UROCIT-K [Concomitant]
     Active Substance: POTASSIUM CITRATE
  3. COMPAZINE [Concomitant]
     Active Substance: PROCHLORPERAZINE MALEATE
  4. PLANTAGO AFRA SEED [Concomitant]
     Active Substance: PLANTAGO AFRA SEED
  5. LISINOPRIL [Concomitant]
     Active Substance: LISINOPRIL
  6. METFORMIN [Concomitant]
     Active Substance: METFORMIN HYDROCHLORIDE
  7. METOPROLOL TARTRATE [Concomitant]
     Active Substance: METOPROLOL TARTRATE
  8. TAMSULOSIN [Concomitant]
     Active Substance: TAMSULOSIN
  9. WARFARIN [Concomitant]
     Active Substance: WARFARIN
  10. CYTOXAN [Concomitant]
     Active Substance: CYCLOPHOSPHAMIDE
     Dosage: UNK
     Dates: start: 20230517, end: 20230519
  11. FLUDARA [Concomitant]
     Active Substance: FLUDARABINE PHOSPHATE
     Dosage: UNK
     Dates: start: 20230517, end: 20230519

REACTIONS (14)
  - Pancytopenia [Recovered/Resolved]
  - Immunodeficiency [Not Recovered/Not Resolved]
  - Tumour lysis syndrome [Unknown]
  - Physical deconditioning [Unknown]
  - Fall [Unknown]
  - Deep vein thrombosis [Unknown]
  - Acute respiratory failure [Recovered/Resolved]
  - Asthenia [Not Recovered/Not Resolved]
  - Immune effector cell-associated neurotoxicity syndrome [Recovered/Resolved]
  - Febrile neutropenia [Unknown]
  - Atrial fibrillation [Unknown]
  - Acute kidney injury [Recovered/Resolved]
  - Cytokine release syndrome [Recovered/Resolved]
  - Subdural haematoma [Recovered/Resolved]

NARRATIVE: CASE EVENT DATE: 20230524
